FAERS Safety Report 17877489 (Version 1)
Quarter: 2020Q2

REPORT INFORMATION
  Report Type: Report from Study
  Country: PL (occurrence: PL)
  Receive Date: 20200609
  Receipt Date: 20200609
  Transmission Date: 20200714
  Serious: Yes (Hospitalization, Other)
  Sender: FDA-Public Use
  Company Number: PL-REGENERON PHARMACEUTICALS, INC.-2020-32975

PATIENT

DRUGS (1)
  1. EYLEA [Suspect]
     Active Substance: AFLIBERCEPT
     Indication: NEOVASCULAR AGE-RELATED MACULAR DEGENERATION
     Dosage: 2 MG, RIGHT EYE,  TOTAL OF 8 EYLEA DOSES, LASR DOSE WAS RECEIVED ON 15-APR-2020
     Route: 031
     Dates: start: 20161103

REACTIONS (4)
  - Blindness [Unknown]
  - Wrong technique in product usage process [Unknown]
  - Endophthalmitis [Recovering/Resolving]
  - Multiple use of single-use product [Unknown]

NARRATIVE: CASE EVENT DATE: 20200418
